FAERS Safety Report 4285606-5 (Version None)
Quarter: 2004Q1

REPORT INFORMATION
  Report Type: 
  Country: None (occurrence: None)
  Receive Date: 20040203
  Receipt Date: 20040119
  Transmission Date: 20041129
  Serious: Yes (Disabling)
  Sender: FDA-Public Use
  Company Number: 2004SE00379

PATIENT
  Sex: 0

DRUGS (2)
  1. NAROPIN [Suspect]
     Indication: POSTOPERATIVE ANALGESIA
     Dates: start: 20020201, end: 20020201
  2. ADRENALIN [Suspect]
     Indication: POSTOPERATIVE ANALGESIA
     Dates: start: 20020201, end: 20020201

REACTIONS (3)
  - EXTRADURAL HAEMATOMA [None]
  - PARAPLEGIA [None]
  - SPINAL CORD COMPRESSION [None]
